FAERS Safety Report 8177824-0 (Version None)
Quarter: 2012Q1

REPORT INFORMATION
  Report Type: 
  Country: None (occurrence: None)
  Receive Date: 20120301
  Receipt Date: 20120228
  Transmission Date: 20120608
  Serious: Yes (Hospitalization, Other)
  Sender: FDA-Public Use
  Company Number: US-MERCK-1106USA01823

PATIENT
  Age: 53 Year
  Sex: Female

DRUGS (17)
  1. FOSAMAX [Suspect]
     Route: 048
     Dates: start: 19980101, end: 20000101
  2. CITRACAL [Concomitant]
     Route: 065
     Dates: start: 19900101
  3. ALENDRONATE SODIUM [Suspect]
     Route: 065
     Dates: start: 20080301, end: 20090501
  4. COMBIPATCH [Concomitant]
     Route: 065
     Dates: end: 20010220
  5. FOSAMAX [Suspect]
     Route: 048
     Dates: start: 19980101, end: 20000101
  6. COSAMIN DS [Concomitant]
     Route: 065
  7. FOSAMAX [Suspect]
     Route: 048
     Dates: start: 20000105, end: 20081013
  8. FOSAMAX [Suspect]
     Route: 048
     Dates: start: 20000105, end: 20081013
  9. [THERAPY UNSPECIFIED] [Concomitant]
     Route: 065
  10. FLAXSEED [Concomitant]
     Route: 065
  11. GARLIC [Concomitant]
     Route: 065
  12. FOSAMAX [Suspect]
     Indication: OSTEOPENIA
     Route: 048
     Dates: start: 19980101, end: 20081013
  13. OMEGA-3 MARINE TRIGLYCERIDES [Concomitant]
     Route: 065
  14. FOSAMAX PLUS D [Suspect]
     Indication: OSTEOPENIA
     Route: 048
     Dates: start: 20000105, end: 20081013
  15. BIOGENESIS TRI MAGNESIUM [Concomitant]
     Route: 065
  16. FOSAMAX [Suspect]
     Indication: OSTEOPOROSIS
     Route: 048
     Dates: start: 19980101, end: 20081013
  17. ESTRATEST [Concomitant]
     Route: 065

REACTIONS (34)
  - COLONIC POLYP [None]
  - SKULL FRACTURE [None]
  - ARTHRALGIA [None]
  - MUSCULAR WEAKNESS [None]
  - HOT FLUSH [None]
  - CONTUSION [None]
  - FALL [None]
  - DEAFNESS [None]
  - PAIN IN EXTREMITY [None]
  - MEDICAL DEVICE COMPLICATION [None]
  - NASAL CONGESTION [None]
  - PERONEAL NERVE PALSY [None]
  - TRAUMATIC HAEMATOMA [None]
  - BLOOD PRESSURE INCREASED [None]
  - MUSCLE STRAIN [None]
  - DEPRESSION [None]
  - ANOSMIA [None]
  - VITAMIN D DEFICIENCY [None]
  - DRUG INEFFECTIVE [None]
  - CRANIOCEREBRAL INJURY [None]
  - DEVICE COMPONENT ISSUE [None]
  - POST CONCUSSION SYNDROME [None]
  - CARPAL TUNNEL SYNDROME [None]
  - ABDOMINAL DISCOMFORT [None]
  - RHINITIS ALLERGIC [None]
  - LOW TURNOVER OSTEOPATHY [None]
  - CONCUSSION [None]
  - ADVERSE EVENT [None]
  - SKIN REACTION [None]
  - URINARY INCONTINENCE [None]
  - BURSITIS [None]
  - RETINAL TEAR [None]
  - MIGRAINE [None]
  - FEMUR FRACTURE [None]
